FAERS Safety Report 11773141 (Version 3)
Quarter: 2016Q1

REPORT INFORMATION
  Report Type: Spontaneous
  Country: US (occurrence: None)
  Receive Date: 20151124
  Receipt Date: 20160121
  Transmission Date: 20160525
  Serious: Yes (Other)
  Sender: FDA-Public Use
  Company Number: ADR-2015-00830

PATIENT
  Age: 69 Year
  Sex: Male

DRUGS (1)
  1. LIORESAL [Suspect]
     Active Substance: BACLOFEN
     Indication: MUSCLE SPASTICITY
     Dosage: 468.7 MCG/DAY

REACTIONS (9)
  - Pruritus [None]
  - Muscle spasticity [None]
  - Incorrect route of drug administration [None]
  - Arachnoiditis [None]
  - No therapeutic response [None]
  - Infusion site extravasation [None]
  - Drug withdrawal syndrome [None]
  - Gait disturbance [None]
  - Therapeutic response decreased [None]
